FAERS Safety Report 10236523 (Version 1)
Quarter: 2014Q2

REPORT INFORMATION
  Report Type: Spontaneous
  Country: FR (occurrence: FR)
  Receive Date: 20140613
  Receipt Date: 20140613
  Transmission Date: 20141212
  Serious: Yes (Hospitalization, Other)
  Sender: FDA-Public Use
  Company Number: FR-ASTRAZENECA-2014SE39830

PATIENT
  Age: 24416 Day
  Sex: Female

DRUGS (2)
  1. FASLODEX [Suspect]
     Indication: LUNG ADENOCARCINOMA
     Route: 030
     Dates: start: 20140212
  2. IRESSA [Suspect]
     Indication: LUNG ADENOCARCINOMA
     Route: 048
     Dates: start: 20140212

REACTIONS (4)
  - Condition aggravated [Not Recovered/Not Resolved]
  - Pleurisy [Not Recovered/Not Resolved]
  - Dyspnoea [Unknown]
  - Oedema peripheral [Unknown]
